FAERS Safety Report 9988302 (Version 2)
Quarter: 2014Q1

REPORT INFORMATION
  Report Type: Report from Study
  Country: CA (occurrence: CA)
  Receive Date: 20140310
  Receipt Date: 20140310
  Transmission Date: 20141002
  Serious: Yes (Other)
  Sender: FDA-Public Use
  Company Number: CA-ROCHE-1222165

PATIENT
  Age: 45 Year
  Sex: Male
  Weight: 63 kg

DRUGS (8)
  1. ACTEMRA [Suspect]
     Indication: RHEUMATOID ARTHRITIS
     Dosage: THERAPY START DATE 04/APR/2013?MOST RECENT DOSE WAS ON 17/OCT/2013.
     Route: 042
     Dates: start: 201310
  2. OXYCONTIN [Suspect]
     Indication: PAIN
     Route: 048
  3. METHOTREXATE [Suspect]
     Indication: RHEUMATOID ARTHRITIS
     Route: 065
     Dates: end: 201310
  4. METHOTREXATE [Suspect]
     Route: 065
     Dates: start: 20140202
  5. ORENCIA [Concomitant]
     Indication: PRODUCT USED FOR UNKNOWN INDICATION
     Route: 042
  6. VOLTAREN [Concomitant]
  7. FOLIC ACID [Concomitant]
  8. FLOMAX (CANADA) [Concomitant]

REACTIONS (8)
  - Nausea [Recovered/Resolved]
  - Rash [Recovering/Resolving]
  - Pain [Not Recovered/Not Resolved]
  - Dry skin [Not Recovered/Not Resolved]
  - Weight increased [Recovering/Resolving]
  - Headache [Recovered/Resolved]
  - Musculoskeletal stiffness [Recovered/Resolved]
  - Pain [Not Recovered/Not Resolved]
